FAERS Safety Report 16115303 (Version 2)
Quarter: 2019Q2

REPORT INFORMATION
  Report Type: Spontaneous
  Country: US (occurrence: US)
  Receive Date: 20190325
  Receipt Date: 20190524
  Transmission Date: 20190711
  Serious: No
  Sender: FDA-Public Use
  Company Number: US-PFIZER INC-2019122918

PATIENT
  Age: 41 Year
  Sex: Female
  Weight: 57.14 kg

DRUGS (1)
  1. EFFEXOR XR [Suspect]
     Active Substance: VENLAFAXINE HYDROCHLORIDE
     Indication: ANXIETY
     Dosage: 112.5 MG, (TAKE 3 CAPSULE (112.5 MG TOTAL) BY MOUTH DAILY)
     Route: 048

REACTIONS (1)
  - Malaise [Unknown]
